FAERS Safety Report 9775298 (Version 2)
Quarter: 2013Q4

REPORT INFORMATION
  Report Type: Spontaneous
  Country: US (occurrence: US)
  Receive Date: 20131220
  Receipt Date: 20131231
  Transmission Date: 20140711
  Serious: Yes (Hospitalization, Other)
  Sender: FDA-Public Use
  Company Number: US-009507513-1312USA008422

PATIENT
  Sex: Female
  Weight: 117.1 kg

DRUGS (1)
  1. NUVARING [Suspect]
     Indication: CONTRACEPTION
     Dosage: UNK
     Route: 067
     Dates: start: 201110, end: 20120330

REACTIONS (4)
  - Cardiac failure [Unknown]
  - Pulmonary embolism [Recovering/Resolving]
  - Deep vein thrombosis [Not Recovered/Not Resolved]
  - Systemic lupus erythematosus [Unknown]
